FAERS Safety Report 11060397 (Version 1)
Quarter: 2015Q2

REPORT INFORMATION
  Report Type: Spontaneous
  Country: TR (occurrence: TR)
  Receive Date: 20150423
  Receipt Date: 20150423
  Transmission Date: 20150821
  Serious: Yes (Hospitalization, Other)
  Sender: FDA-Public Use
  Company Number: TR-APOTEX-2015AP008505

PATIENT
  Age: 16 Year
  Sex: Female

DRUGS (2)
  1. SERTRALINE [Suspect]
     Active Substance: SERTRALINE HYDROCHLORIDE
     Indication: DEPRESSION
     Dosage: 50 MG, UNK
  2. SERTRALINE [Suspect]
     Active Substance: SERTRALINE HYDROCHLORIDE
     Dosage: 14 DF, SINGLE
     Route: 065

REACTIONS (3)
  - Intentional overdose [Recovered/Resolved]
  - Extrapyramidal disorder [Recovered/Resolved]
  - Suicide attempt [Recovered/Resolved]
